FAERS Safety Report 8295613 (Version 2)
Quarter: 2012Q4

REPORT INFORMATION
  Report Type: 
  Country: US (occurrence: US)
  Receive Date: 20111216
  Receipt Date: 20121218
  Transmission Date: 20130627
  Serious: No
  Sender: FDA-Public Use
  Company Number: US-BRISTOL-MYERS SQUIBB COMPANY-15921448

PATIENT
  Age: 49 Year
  Sex: Female

DRUGS (3)
  1. ABILIFY [Suspect]
     Indication: DEPRESSION
     Dosage: Initially given 1 mg,then increased to 5 mg
1-2mg
     Route: 048
     Dates: start: 201012
  2. CYMBALTA [Suspect]
     Dates: start: 201009
  3. VALIUM [Suspect]

REACTIONS (1)
  - Obsessive-compulsive disorder [Recovered/Resolved]
